FAERS Safety Report 6975920-4 (Version None)
Quarter: 2010Q3

REPORT INFORMATION
  Report Type: 
  Country: None (occurrence: None)
  Receive Date: 20100910
  Receipt Date: 20100831
  Transmission Date: 20110219
  Serious: Yes (Other)
  Sender: FDA-Public Use
  Company Number: PHHY2010DE57460

PATIENT
  Sex: Male

DRUGS (2)
  1. ZOMETA [Suspect]
     Indication: METASTASES TO BONE
     Dosage: ONCE MONTHLY
     Route: 042
     Dates: start: 20090901
  2. ANTIBIOTICS [Concomitant]

REACTIONS (6)
  - BONE DEBRIDEMENT [None]
  - BONE DISORDER [None]
  - BREATH ODOUR [None]
  - IMPLANT SITE INFLAMMATION [None]
  - MEDICAL DEVICE REMOVAL [None]
  - OSTEONECROSIS OF JAW [None]
